FAERS Safety Report 4931170-4 (Version None)
Quarter: 2006Q1

REPORT INFORMATION
  Report Type: 
  Country: None (occurrence: None)
  Receive Date: 20060302
  Receipt Date: 20050404
  Transmission Date: 20060701
  Serious: Yes (Hospitalization)
  Sender: FDA-Public Use
  Company Number: US-MERCK-0504USA00481

PATIENT
  Age: 53 Year
  Sex: Male

DRUGS (12)
  1. ACETAMINOPHEN AND HYDROCODONE BITARTRATE [Concomitant]
     Route: 065
  2. CYCLOBENZAPRINE HYDROCHLORIDE [Concomitant]
     Route: 065
  3. VIOXX [Suspect]
     Indication: BACK INJURY
     Route: 048
     Dates: start: 20010801
  4. VIOXX [Suspect]
     Route: 048
     Dates: start: 20010801
  5. LOPID [Concomitant]
     Route: 065
  6. LISINOPRIL [Concomitant]
     Route: 065
  7. GLYBURIDE [Concomitant]
     Route: 065
  8. ACTOS [Concomitant]
     Route: 065
  9. VERAPAMIL [Concomitant]
     Route: 065
  10. PREVACID [Concomitant]
     Route: 065
  11. ASPIRIN [Concomitant]
     Route: 065
  12. CELEXA [Concomitant]
     Route: 065

REACTIONS (6)
  - ANGINA UNSTABLE [None]
  - ARTERIOSCLEROSIS CORONARY ARTERY [None]
  - CHEST DISCOMFORT [None]
  - CHEST PAIN [None]
  - GASTRITIS [None]
  - PANCREATITIS [None]
